FAERS Safety Report 16854686 (Version 1)
Quarter: 2019Q3

REPORT INFORMATION
  Report Type: Spontaneous
  Country: US (occurrence: US)
  Receive Date: 20190926
  Receipt Date: 20190926
  Transmission Date: 20191005
  Serious: No
  Sender: FDA-Public Use
  Company Number: US-BION-007714

PATIENT
  Age: 78 Year
  Sex: Male

DRUGS (1)
  1. BION PHARMA^S BEXAROTENE [Suspect]
     Active Substance: BEXAROTENE
     Indication: CUTANEOUS T-CELL LYMPHOMA
     Dosage: STRENGTH: 75 MG
     Route: 048
     Dates: start: 201706

REACTIONS (1)
  - Oral discomfort [Recovered/Resolved]
